FAERS Safety Report 10054900 (Version 2)
Quarter: 2014Q3

REPORT INFORMATION
  Report Type: Spontaneous
  Country: US (occurrence: US)
  Receive Date: 20140402
  Receipt Date: 20140917
  Transmission Date: 20150326
  Serious: Yes (Death, Other)
  Sender: FDA-Public Use
  Company Number: US-GILEAD-2014-0098394

PATIENT
  Age: 81 Year
  Sex: Female

DRUGS (21)
  1. MAGNESIUM [Concomitant]
     Active Substance: MAGNESIUM
  2. TYVASO [Concomitant]
     Active Substance: TREPROSTINIL
  3. LETAIRIS [Suspect]
     Active Substance: AMBRISENTAN
     Indication: SLEEP APNOEA SYNDROME
  4. REVATIO [Concomitant]
     Active Substance: SILDENAFIL CITRATE
  5. VITAMIN C [Concomitant]
     Active Substance: ASCORBIC ACID
  6. LUTEIN                             /06447201/ [Concomitant]
  7. FUROSEMIDE. [Concomitant]
     Active Substance: FUROSEMIDE
  8. LETAIRIS [Suspect]
     Active Substance: AMBRISENTAN
     Indication: ALVEOLITIS ALLERGIC
  9. LEXAPRO [Concomitant]
     Active Substance: ESCITALOPRAM OXALATE
  10. ALBUTEROL                          /00139501/ [Concomitant]
     Active Substance: ALBUTEROL
  11. LETAIRIS [Suspect]
     Active Substance: AMBRISENTAN
     Indication: PULMONARY HYPERTENSION
     Dosage: 10 MG, QD
     Route: 065
     Dates: start: 20080122
  12. COQ10                              /00517201/ [Concomitant]
  13. CALCIUM [Concomitant]
     Active Substance: CALCIUM
  14. PREDNISONE. [Concomitant]
     Active Substance: PREDNISONE
  15. LETAIRIS [Suspect]
     Active Substance: AMBRISENTAN
     Indication: KYPHOSCOLIOSIS
  16. NEXIUM [Concomitant]
     Active Substance: ESOMEPRAZOLE MAGNESIUM
  17. MELATONIN [Concomitant]
     Active Substance: MELATONIN
  18. ARIMIDEX [Concomitant]
     Active Substance: ANASTROZOLE
  19. ALENDRONATE [Concomitant]
     Active Substance: ALENDRONATE SODIUM
  20. ANASTROZOLE. [Concomitant]
     Active Substance: ANASTROZOLE
  21. VITAMIN D [Concomitant]
     Active Substance: CHOLECALCIFEROL

REACTIONS (1)
  - Death [Fatal]

NARRATIVE: CASE EVENT DATE: 20140307
